FAERS Safety Report 24753370 (Version 1)
Quarter: 2024Q4

REPORT INFORMATION
  Report Type: Spontaneous
  Country: US (occurrence: US)
  Receive Date: 20241219
  Receipt Date: 20241219
  Transmission Date: 20250115
  Serious: No
  Sender: DR REDDYS
  Company Number: US-DRL-USA-LIT/USA/24/0018446

PATIENT
  Age: 71 Year
  Sex: Female

DRUGS (6)
  1. DECITABINE [Suspect]
     Active Substance: DECITABINE
     Indication: Philadelphia positive acute lymphocytic leukaemia
     Dosage: DECITABINE (20 MG/M2 ONCE DAILY, DAYS 1-5)
  2. VENETOCLAX [Suspect]
     Active Substance: VENETOCLAX
     Indication: Philadelphia positive acute lymphocytic leukaemia
     Dosage: 100MG ONCE DAILY (DOSE REDUCED FROM 400 MG)
  3. VENETOCLAX [Suspect]
     Active Substance: VENETOCLAX
     Dosage: 100MG ONCE DAILY (DOSE REDUCED?FROM 400 MG
  4. POSACONAZOLE [Concomitant]
     Active Substance: POSACONAZOLE
     Indication: Prophylaxis
     Dosage: DAYS 1-14
  5. DASATINIB [Concomitant]
     Active Substance: DASATINIB
     Indication: Philadelphia positive acute lymphocytic leukaemia
     Dosage: 100 MG ONCE DAILY
  6. DASATINIB [Concomitant]
     Active Substance: DASATINIB
     Dosage: 100 MG ONCE DAILY

REACTIONS (2)
  - Drug intolerance [Unknown]
  - Product use in unapproved indication [Unknown]
